FAERS Safety Report 4678509-5 (Version None)
Quarter: 2005Q2

REPORT INFORMATION
  Report Type: 
  Country: None (occurrence: None)
  Receive Date: 20050601
  Receipt Date: 20050412
  Transmission Date: 20051028
  Serious: Yes (Other)
  Sender: FDA-Public Use
  Company Number: JP-MERCK-0505USA03365

PATIENT
  Age: 49 Year
  Sex: Female

DRUGS (10)
  1. PEPCID [Suspect]
     Route: 048
  2. LAFUTIDINE [Suspect]
     Route: 048
  3. LOXONIN [Suspect]
     Route: 048
  4. CRAVIT [Suspect]
     Route: 048
  5. SILECE [Concomitant]
     Route: 048
  6. SEPAZON [Concomitant]
     Route: 048
  7. AMOBAN [Concomitant]
     Route: 048
  8. SELBEX [Concomitant]
     Route: 048
  9. ASTOMIN [Concomitant]
     Route: 048
  10. NEORAL [Concomitant]
     Route: 048

REACTIONS (2)
  - STEVENS-JOHNSON SYNDROME [None]
  - TOXIC EPIDERMAL NECROLYSIS [None]
